FAERS Safety Report 5344124-3 (Version None)
Quarter: 2007Q2

REPORT INFORMATION
  Report Type: 
  Country: None (occurrence: None)
  Receive Date: 20070531
  Receipt Date: 20070531
  Transmission Date: 20071010
  Serious: Yes (Life-Threatening, Other)
  Sender: FDA-Public Use
  Company Number: None

PATIENT
  Age: 60 Year
  Sex: Male
  Weight: 86.1834 kg

DRUGS (3)
  1. BOTOX [Suspect]
     Indication: MUSCLE SPASMS
     Dosage: 400 UNITS ONE TIME IM
     Route: 030
     Dates: start: 20070206, end: 20070206
  2. BOTOX [Suspect]
     Indication: MUSCULOSKELETAL PAIN
     Dosage: 400 UNITS ONE TIME IM
     Route: 030
     Dates: start: 20070206, end: 20070206
  3. BOTOX [Suspect]
     Indication: NECK PAIN
     Dosage: 400 UNITS ONE TIME IM
     Route: 030
     Dates: start: 20070206, end: 20070206

REACTIONS (15)
  - ASTHENIA [None]
  - BOTULISM [None]
  - DYSPHAGIA [None]
  - DYSPHONIA [None]
  - DYSPNOEA [None]
  - FATIGUE [None]
  - HEADACHE [None]
  - HEART RATE INCREASED [None]
  - MUSCLE STRAIN [None]
  - OESOPHAGEAL DISORDER [None]
  - PARALYSIS [None]
  - SPEECH DISORDER [None]
  - TRACHEAL DISORDER [None]
  - VASODILATATION [None]
  - VOCAL CORD PARALYSIS [None]
